FAERS Safety Report 17447336 (Version 1)
Quarter: 2020Q1

REPORT INFORMATION
  Report Type: Report from Study
  Country: ES (occurrence: ES)
  Receive Date: 20200221
  Receipt Date: 20200221
  Transmission Date: 20200409
  Serious: Yes (Other)
  Sender: FDA-Public Use
  Company Number: ES-MYLANLABS-2020M1018880

PATIENT
  Age: 85 Year
  Sex: Male

DRUGS (10)
  1. OPIREN [Concomitant]
     Active Substance: LANSOPRAZOLE
     Dosage: UNK
  2. RILAST [Concomitant]
     Active Substance: BUDESONIDE\FORMOTEROL
     Dosage: INHALATION SUSPENSION FOR PRESSURE PACK INHALATION
  3. VENTOLIN [Concomitant]
     Active Substance: ALBUTEROL SULFATE
     Dosage: INHALATION SUSPENSION FOR PRESSURE PACK INHALATION
  4. ADIRO [Concomitant]
     Active Substance: ASPIRIN
     Dosage: UNK
  5. DIGOXINA [Concomitant]
     Active Substance: DIGOXIN
     Dosage: UNK
  6. SIMVASTATINA [Concomitant]
     Active Substance: SIMVASTATIN
     Dosage: UNK
  7. ENALAPRIL [Suspect]
     Active Substance: ENALAPRIL
     Indication: HYPERTENSION
     Dosage: 1-0-0
     Route: 048
     Dates: start: 20120202, end: 20180520
  8. METFORMIN [Concomitant]
     Active Substance: METFORMIN HYDROCHLORIDE
     Dosage: UNK
  9. DILTIAZEM. [Concomitant]
     Active Substance: DILTIAZEM
     Dosage: UNK
  10. SPIRIVA [Concomitant]
     Active Substance: TIOTROPIUM BROMIDE MONOHYDRATE
     Dosage: POWDER FOR INHALATION

REACTIONS (1)
  - Hyperkalaemia [Recovering/Resolving]

NARRATIVE: CASE EVENT DATE: 20180520
